FAERS Safety Report 6282942-8 (Version None)
Quarter: 2009Q3

REPORT INFORMATION
  Report Type: 
  Country: None (occurrence: None)
  Receive Date: 20090724
  Receipt Date: 20090715
  Transmission Date: 20100115
  Serious: Yes (Hospitalization, Disabling, Other)
  Sender: FDA-Public Use
  Company Number: CA-ELI_LILLY_AND_COMPANY-CA200901002352

PATIENT
  Age: 63 Year
  Sex: Female

DRUGS (2)
  1. FORTEO [Suspect]
     Indication: OSTEOPOROSIS
     Dosage: 20 UG, DAILY (1/D)
     Route: 058
     Dates: start: 20080530, end: 20090401
  2. METFORMIN HCL [Concomitant]
     Indication: DIABETES MELLITUS
     Dosage: 500 MG, 3/D

REACTIONS (5)
  - DIABETIC NEUROPATHY [None]
  - METASTATIC NEOPLASM [None]
  - MOBILITY DECREASED [None]
  - NON-SMALL CELL LUNG CANCER STAGE IV [None]
  - PAIN IN EXTREMITY [None]
